FAERS Safety Report 7353919-6 (Version None)
Quarter: 2011Q1

REPORT INFORMATION
  Report Type: 
  Country: None (occurrence: None)
  Receive Date: 20110315
  Receipt Date: 20110301
  Transmission Date: 20110831
  Serious: Yes (Hospitalization, Other)
  Sender: FDA-Public Use
  Company Number: PHHY2011FR17377

PATIENT
  Age: 55 Year
  Sex: Female

DRUGS (1)
  1. RASILEZ [Suspect]
     Indication: HYPERTENSION
     Dosage: 150 MG, QD
     Route: 048
     Dates: start: 20100902, end: 20101216

REACTIONS (3)
  - RESPIRATORY TRACT INFECTION [None]
  - BLOOD CREATININE INCREASED [None]
  - PROTEINURIA [None]
